FAERS Safety Report 18667155 (Version 3)
Quarter: 2021Q3

REPORT INFORMATION
  Report Type: Report from Study
  Country: CA (occurrence: CA)
  Receive Date: 20201228
  Receipt Date: 20210806
  Transmission Date: 20211014
  Serious: Yes (Hospitalization)
  Sender: FDA-Public Use
  Company Number: CA-JNJFOC-20201228540

PATIENT
  Age: 61 Year
  Sex: Female

DRUGS (2)
  1. STELARA [Suspect]
     Active Substance: USTEKINUMAB
     Indication: CROHN^S DISEASE
     Dosage: HAD ONE IV DOSE OF STELARA 520 MG ON 04?SEP?2020?THE PATIENT HAD 2ND INFUSION OF 520MG ON 18?DEC?202
     Route: 042
     Dates: start: 20200904
  2. STELARA [Suspect]
     Active Substance: USTEKINUMAB
     Route: 058

REACTIONS (4)
  - Off label use [Unknown]
  - Colonic fistula [Not Recovered/Not Resolved]
  - Abscess intestinal [Not Recovered/Not Resolved]
  - Abscess rupture [Unknown]

NARRATIVE: CASE EVENT DATE: 2020
